FAERS Safety Report 20107974 (Version 2)
Quarter: 2023Q1

REPORT INFORMATION
  Report Type: Spontaneous
  Country: US (occurrence: US)
  Receive Date: 20211124
  Receipt Date: 20230120
  Transmission Date: 20230418
  Serious: No
  Sender: FDA-Public Use
  Company Number: US-PFIZER INC-202101308150

PATIENT
  Age: 65 Year
  Sex: Male

DRUGS (2)
  1. INLYTA [Suspect]
     Active Substance: AXITINIB
     Dosage: 5 MG
     Dates: start: 20210928
  2. INLYTA [Suspect]
     Active Substance: AXITINIB
     Dosage: 5 MG
     Dates: start: 20211010, end: 202301

REACTIONS (6)
  - Diarrhoea [Unknown]
  - Dizziness [Unknown]
  - Somnolence [Unknown]
  - Dyspnoea [Unknown]
  - Hypertension [Unknown]
  - Visual impairment [Unknown]
